FAERS Safety Report 5735766-1 (Version None)
Quarter: 2008Q2

REPORT INFORMATION
  Report Type: 
  Country: None (occurrence: None)
  Receive Date: 20080509
  Receipt Date: 20080509
  Transmission Date: 20081010
  Serious: No
  Sender: FDA-Public Use
  Company Number: None

PATIENT
  Sex: Male
  Weight: 74.3899 kg

DRUGS (1)
  1. CREST PRO HEALTH MOUTH WASH PROCTOR + GAMBLE [Suspect]
     Indication: DENTAL DISORDER PROPHYLAXIS
     Dosage: CAP FULL ONCE DAILY ORAL
     Route: 048
     Dates: start: 20080301

REACTIONS (1)
  - TOOTH DISCOLOURATION [None]
